FAERS Safety Report 9187504 (Version 5)
Quarter: 2013Q3

REPORT INFORMATION
  Report Type: Report from Study
  Country: US (occurrence: US)
  Receive Date: 20130325
  Receipt Date: 20130925
  Transmission Date: 20140515
  Serious: Yes (Death, Life-Threatening, Hospitalization)
  Sender: FDA-Public Use
  Company Number: US-PFIZER INC-2013093836

PATIENT
  Age: 59 Year
  Sex: Male
  Weight: 96.6 kg

DRUGS (20)
  1. IRINOTECAN HCL [Suspect]
     Indication: COLORECTAL CANCER METASTATIC
     Dosage: 180 MG/M2, EVERY 14 DAYS
     Route: 042
     Dates: start: 20130213, end: 20130213
  2. FLUOROURACIL [Suspect]
     Indication: COLORECTAL CANCER METASTATIC
     Dosage: 400 MG/M2, IV BOLUS ON DAY 1 EVERY 14 DAYS
     Route: 040
     Dates: start: 20130213, end: 20130213
  3. FLUOROURACIL [Suspect]
     Dosage: 2400 MG/M2, ON DAYS 1 AND 2 EVERY 14 DAYS
     Route: 042
     Dates: start: 20130213, end: 20130213
  4. BLINDED THERAPY [Suspect]
     Indication: COLORECTAL CANCER METASTATIC
     Dosage: 8 MG/KG, EVERY 14 DAYS
     Route: 042
     Dates: start: 20130213, end: 20130213
  5. FOLINIC ACID [Suspect]
     Indication: COLORECTAL CANCER METASTATIC
     Dosage: 400 MG/M2, EVERY 14 DAYS
     Route: 042
     Dates: start: 20130213, end: 20130213
  6. GABAPENTIN [Concomitant]
     Dosage: UNK
     Dates: start: 20120925
  7. K-DUR [Concomitant]
     Dosage: UNK
     Dates: start: 20130227
  8. LEVAQUIN [Concomitant]
     Dosage: 500 MG, 1X/DAY
     Dates: start: 20130211
  9. ZOLOFT [Concomitant]
     Dosage: UNK
     Dates: start: 201102
  10. CEFTIN [Concomitant]
     Dosage: UNK
     Dates: start: 20130218, end: 20130225
  11. OMEPRAZOLE [Concomitant]
     Dosage: UNK
     Dates: start: 20130110
  12. ASPIRIN [Concomitant]
     Dosage: UNK
     Dates: start: 2005
  13. ATORVASTATIN [Concomitant]
     Dosage: UNK
     Dates: start: 2005
  14. BISOPROLOL WITH HCT [Concomitant]
     Dosage: UNK
     Dates: start: 2005
  15. FLOMAX [Concomitant]
     Dosage: UNK
     Dates: start: 2006
  16. HYDROCHLOROTHIAZIDE [Concomitant]
     Dosage: UNK
     Dates: start: 2005
  17. LORAZEPAM [Concomitant]
     Dosage: UNK
     Dates: start: 2011
  18. QUINAPRIL [Concomitant]
     Dosage: UNK
     Dates: start: 2005
  19. DURAGESIC [Concomitant]
  20. OXYCODONE AND ACETAMINOPHEN [Concomitant]
     Dosage: UNK
     Dates: start: 20130113

REACTIONS (2)
  - Lung infiltration [Fatal]
  - Hypotension [Not Recovered/Not Resolved]
